FAERS Safety Report 20280666 (Version 1)
Quarter: 2022Q1

REPORT INFORMATION
  Report Type: Report from Study
  Country: FR (occurrence: FR)
  Receive Date: 20220103
  Receipt Date: 20220103
  Transmission Date: 20220423
  Serious: Yes (Death, Life-Threatening, Hospitalization, Disabling, Other)
  Sender: FDA-Public Use
  Company Number: FR-PFIZER INC-2018412968

PATIENT
  Age: 60 Year
  Sex: Male
  Weight: 110 kg

DRUGS (18)
  1. SUNITINIB [Suspect]
     Active Substance: SUNITINIB
     Indication: Renal cell carcinoma
     Dosage: 50 MG, DAILY, 4 WEEKS, 2 WEEKS OFF/ START DATE:18-FEB-2016
     Route: 065
     Dates: end: 20161117
  2. NIVOLUMAB [Suspect]
     Active Substance: NIVOLUMAB
     Indication: Renal cell carcinoma
     Dosage: 3 MILLIGRAM/KILOGRAM, CYCLE, 3 MG/KG, EVERY 15 DAYS/DEC-2016
     Dates: end: 201702
  3. CABOZANTINIB [Suspect]
     Active Substance: CABOZANTINIB
     Indication: Renal cell carcinoma
     Dosage: 60 MG, 1X/DAY/ START DATE: JUN-2017
     Dates: end: 201708
  4. NEBIVOLOL [Concomitant]
     Active Substance: NEBIVOLOL
     Indication: Hypertension
     Dosage: UNK
  5. ALPRAZOLAM [Concomitant]
     Active Substance: ALPRAZOLAM
     Indication: Anxiolytic therapy
     Dosage: START DATE: NOV-2016
  6. Lamaline [Concomitant]
     Indication: Analgesic therapy
     Dosage: NOV-2016
  7. RAMIPRIL [Concomitant]
     Active Substance: RAMIPRIL
     Indication: Hypertension
     Dosage: START DATE: MAR-2016
     Dates: end: 2016
  8. RAMIPRIL [Concomitant]
     Active Substance: RAMIPRIL
     Dosage: START DATE: JAN-2017
     Dates: end: 201710
  9. ONGLYZA [Concomitant]
     Active Substance: SAXAGLIPTIN HYDROCHLORIDE
     Indication: Diabetes mellitus
     Dosage: UNK
  10. NEBIVOLOL [Concomitant]
     Active Substance: NEBIVOLOL
     Indication: Hypertension
     Dosage: START DATE: MAR-2016
     Dates: end: 201612
  11. KAYEXALATE [Concomitant]
     Active Substance: SODIUM POLYSTYRENE SULFONATE
     Indication: Hyperkalaemia
     Dosage: UNK
     Dates: end: 2016
  12. ZOMETA [Concomitant]
     Active Substance: ZOLEDRONIC ACID
     Indication: Hypercalcaemia
     Dosage: START DATE: FEB-2016
     Dates: end: 2016
  13. FOLIC ACID [Concomitant]
     Active Substance: FOLIC ACID
     Indication: Prophylaxis
     Dosage: UNKNOWN DATE IN 2017
  14. ARANESP [Concomitant]
     Active Substance: DARBEPOETIN ALFA
     Indication: Anaemia
     Dosage: SEP-2016
  15. BISOPROLOL [Concomitant]
     Active Substance: BISOPROLOL
     Indication: Hypertension
     Dosage: START DATE: DEC-2017
  16. CORDARONE [Concomitant]
     Active Substance: AMIODARONE HYDROCHLORIDE
     Indication: Atrial flutter
     Dosage: START DATE: DEC-2017
  17. EUPANTOL [Concomitant]
     Active Substance: PANTOPRAZOLE SODIUM
     Indication: Gastrooesophageal reflux prophylaxis
     Dosage: START DATE: 2017
  18. AREDIA [Concomitant]
     Active Substance: PAMIDRONATE DISODIUM
     Indication: Hypercalcaemia
     Dosage: START DATE: FEB-2017
     Dates: end: 201702

REACTIONS (10)
  - Neoplasm progression [Fatal]
  - Superficial vein thrombosis [Recovered/Resolved]
  - General physical health deterioration [Recovered/Resolved]
  - Oedema peripheral [Recovered/Resolved]
  - Anaemia [Not Recovered/Not Resolved]
  - Deep vein thrombosis [Unknown]
  - Hypothyroidism [Recovered/Resolved]
  - Varicose ulceration [Not Recovered/Not Resolved]
  - Skin ulcer [Recovered/Resolved]
  - Off label use [Unknown]

NARRATIVE: CASE EVENT DATE: 20160912
